FAERS Safety Report 4913725-6 (Version None)
Quarter: 2006Q1

REPORT INFORMATION
  Report Type: 
  Country: None (occurrence: None)
  Receive Date: 20060210
  Receipt Date: 20060201
  Transmission Date: 20060701
  Serious: Yes (Other)
  Sender: FDA-Public Use
  Company Number: USA-2005-0021844

PATIENT
  Sex: Male

DRUGS (6)
  1. MORPHINE SULFATE [Suspect]
     Indication: PAIN
     Dosage: 30 MG, BID
  2. ZOLOFT [Concomitant]
  3. OXYCONTIN [Concomitant]
  4. DIAZEPAM [Concomitant]
  5. CLONIDINE [Concomitant]
  6. FELDENE [Concomitant]

REACTIONS (13)
  - ASTHENIA [None]
  - BACK PAIN [None]
  - BILE DUCT STONE [None]
  - CHOLELITHIASIS [None]
  - CONDITION AGGRAVATED [None]
  - CYST [None]
  - DEVICE FAILURE [None]
  - DEVICE MALFUNCTION [None]
  - DIFFICULTY IN WALKING [None]
  - MASS [None]
  - PAIN IN EXTREMITY [None]
  - PARAESTHESIA [None]
  - SPINAL DISORDER [None]
